FAERS Safety Report 9070411 (Version 1)
Quarter: 2013Q1

REPORT INFORMATION
  Report Type: Spontaneous
  Country: US (occurrence: US)
  Receive Date: 20130215
  Receipt Date: 20130215
  Transmission Date: 20140127
  Serious: No
  Sender: FDA-Public Use
  Company Number: US-BAYER-2013-017582

PATIENT
  Sex: Female

DRUGS (1)
  1. SAFYRAL [Suspect]
     Indication: MENORRHAGIA
     Dosage: UNK
     Route: 048

REACTIONS (2)
  - Off label use [None]
  - Incorrect dose administered [None]
